FAERS Safety Report 24423334 (Version 3)
Quarter: 2024Q4

REPORT INFORMATION
  Report Type: Spontaneous
  Country: US (occurrence: US)
  Receive Date: 20241010
  Receipt Date: 20241120
  Transmission Date: 20250115
  Serious: No
  Sender: BIOGEN
  Company Number: US-BIOGEN-2024BI01274624

PATIENT
  Sex: Female

DRUGS (9)
  1. AVONEX [Suspect]
     Active Substance: INTERFERON BETA-1A
     Indication: Multiple sclerosis
     Dosage: INJECT 30 MCG (1 INJECTOR) INTRAMUSCULARLY ONCE WEEKLY?30 MICROGRAM/0.5 ML
     Route: 050
     Dates: start: 20140905, end: 20241008
  2. AVONEX [Suspect]
     Active Substance: INTERFERON BETA-1A
  3. AVONEX [Suspect]
     Active Substance: INTERFERON BETA-1A
  4. AVONEX [Suspect]
     Active Substance: INTERFERON BETA-1A
  5. IBUPROFEN [Concomitant]
     Active Substance: IBUPROFEN
     Route: 050
  6. STREN [Concomitant]
     Route: 050
  7. OMEPRAZOLE [Concomitant]
     Active Substance: OMEPRAZOLE
     Route: 050
  8. MYRBETRIQ [Concomitant]
     Active Substance: MIRABEGRON
     Route: 050
  9. ATORVASTATIN CALCIUM [Concomitant]
     Active Substance: ATORVASTATIN CALCIUM
     Route: 050

REACTIONS (3)
  - Multiple sclerosis [Unknown]
  - Asthenia [Unknown]
  - Headache [Unknown]
